FAERS Safety Report 15208875 (Version 1)
Quarter: 2018Q3

REPORT INFORMATION
  Report Type: Spontaneous
  Country: US (occurrence: US)
  Receive Date: 20180727
  Receipt Date: 20180727
  Transmission Date: 20181010
  Serious: Yes (Other)
  Sender: FDA-Public Use
  Company Number: US-ELI_LILLY_AND_COMPANY-US201807008423

PATIENT
  Age: 72 Year
  Sex: Female

DRUGS (4)
  1. PRANDIN                            /00882701/ [Concomitant]
     Active Substance: DEFLAZACORT
     Indication: TYPE 2 DIABETES MELLITUS
     Dosage: 2 MG, UNKNOWN
     Route: 065
  2. HUMALOG MIX75/25 [Suspect]
     Active Substance: INSULIN LISPRO
     Dosage: 38 U, EACH EVENING
     Route: 065
     Dates: start: 201805
  3. HUMALOG MIX75/25 [Suspect]
     Active Substance: INSULIN LISPRO
     Dosage: 42 U, EACH MORNING
     Route: 065
     Dates: start: 201805
  4. HUMALOG MIX75/25 [Suspect]
     Active Substance: INSULIN LISPRO
     Indication: PRODUCT USED FOR UNKNOWN INDICATION
     Dosage: UNK, UNKNOWN
     Route: 065

REACTIONS (11)
  - Breast cancer [Unknown]
  - Asthenia [Not Recovered/Not Resolved]
  - Diarrhoea [Recovered/Resolved]
  - Wrong technique in product usage process [Unknown]
  - Lactose intolerance [Unknown]
  - Nausea [Unknown]
  - Blood glucose decreased [Recovered/Resolved]
  - Overweight [Unknown]
  - Blood glucose increased [Not Recovered/Not Resolved]
  - Gastroenteritis viral [Recovered/Resolved]
  - Glycosylated haemoglobin increased [Not Recovered/Not Resolved]

NARRATIVE: CASE EVENT DATE: 20180716
